FAERS Safety Report 13088425 (Version 1)
Quarter: 2017Q1

REPORT INFORMATION
  Report Type: Spontaneous
  Country: US (occurrence: US)
  Receive Date: 20170104
  Receipt Date: 20170104
  Transmission Date: 20170428
  Serious: Yes (Disabling)
  Sender: FDA-Public Use
  Company Number: None

PATIENT
  Age: 70 Year
  Sex: Female
  Weight: 135 kg

DRUGS (8)
  1. RESVERATROL [Concomitant]
     Active Substance: RESVERATROL
  2. SERRAPEPTASE [Concomitant]
     Active Substance: SERRAPEPTASE
  3. CHELATED MAGNESIUM [Concomitant]
  4. FIBER/PROBIOTIC CAPSULE [Concomitant]
  5. L-LYSINE [Concomitant]
     Active Substance: LYSINE
  6. VITAMIN B12 [Concomitant]
     Active Substance: CYANOCOBALAMIN
  7. COENZYME Q10 [Concomitant]
     Active Substance: UBIDECARENONE
  8. LEVAQUIN [Suspect]
     Active Substance: LEVOFLOXACIN
     Indication: PNEUMONIA
     Dosage: QUANTITY:1 TABLET(S); DAILY; ORAL?
     Route: 048
     Dates: start: 19981101, end: 19981101

REACTIONS (14)
  - Tendon pain [None]
  - Musculoskeletal stiffness [None]
  - Activities of daily living impaired [None]
  - Multiple injuries [None]
  - Gait disturbance [None]
  - Muscle spasms [None]
  - Fatigue [None]
  - Rash [None]
  - Gastrointestinal pain [None]
  - Muscular weakness [None]
  - Ligament sprain [None]
  - Joint dislocation [None]
  - Movement disorder [None]
  - Gastrointestinal disorder [None]

NARRATIVE: CASE EVENT DATE: 19981101
